FAERS Safety Report 15680880 (Version 1)
Quarter: 2018Q4

REPORT INFORMATION
  Report Type: Spontaneous
  Country: US (occurrence: US)
  Receive Date: 20181203
  Receipt Date: 20181203
  Transmission Date: 20190205
  Serious: Yes (Other)
  Sender: FDA-Public Use
  Company Number: US-GLAXOSMITHKLINE-US2018211692

PATIENT
  Sex: Female

DRUGS (2)
  1. BENLYSTA [Suspect]
     Active Substance: BELIMUMAB
     Indication: PRODUCT USED FOR UNKNOWN INDICATION
     Dosage: UNK
     Route: 042
     Dates: start: 20181003
  2. GABAPENTIN. [Suspect]
     Active Substance: GABAPENTIN
     Indication: PRODUCT USED FOR UNKNOWN INDICATION

REACTIONS (12)
  - Papilloma viral infection [Unknown]
  - Infection reactivation [Unknown]
  - Drug ineffective [Unknown]
  - Headache [Unknown]
  - Somnolence [Unknown]
  - Chemotherapy [Unknown]
  - Flat affect [Unknown]
  - Precancerous cells present [Unknown]
  - Fatigue [Unknown]
  - Paraesthesia oral [Unknown]
  - Palatal ulcer [Unknown]
  - Condition aggravated [Unknown]
